FAERS Safety Report 21714169 (Version 1)
Quarter: 2022Q4

REPORT INFORMATION
  Report Type: Spontaneous
  Country: US (occurrence: None)
  Receive Date: 20221209
  Receipt Date: 20221209
  Transmission Date: 20230112
  Serious: Yes (Hospitalization)
  Sender: FDA-Public Use
  Company Number: None

PATIENT
  Age: 74 Year
  Sex: Male
  Weight: 100.70 kg

DRUGS (3)
  1. RIVAROXABAN [Suspect]
     Active Substance: RIVAROXABAN
     Indication: Atrial fibrillation
     Dosage: FREQUENCY : DAILY;?
     Route: 048
     Dates: start: 20210222, end: 20220609
  2. ASPIRIN 81MG [Suspect]
     Active Substance: ASPIRIN
     Indication: Vascular device user
     Dosage: FREQUENCY : DAILY;?
     Route: 048
     Dates: start: 20211206, end: 20220605
  3. ASPIRIN 81MG [Suspect]
     Active Substance: ASPIRIN
     Indication: Cerebrovascular accident prophylaxis

REACTIONS (5)
  - Therapy interrupted [None]
  - Haematuria [None]
  - Transient ischaemic attack [None]
  - Cerebral infarction [None]
  - Embolic stroke [None]

NARRATIVE: CASE EVENT DATE: 20220609
